FAERS Safety Report 9842929 (Version 2)
Quarter: 2014Q1

REPORT INFORMATION
  Report Type: Spontaneous
  Country: US (occurrence: US)
  Receive Date: 20140124
  Receipt Date: 20140312
  Transmission Date: 20141002
  Serious: Yes (Other)
  Sender: FDA-Public Use
  Company Number: US-GLAXOSMITHKLINE-A1057103A

PATIENT
  Age: 41 Year
  Sex: Female
  Weight: 98.6 kg

DRUGS (4)
  1. BENLYSTA [Suspect]
     Indication: SYSTEMIC LUPUS ERYTHEMATOSUS
     Dosage: 10MGK MONTHLY
     Route: 042
     Dates: start: 20120921, end: 20130506
  2. PLAQUENIL [Concomitant]
  3. NIFEDIPINE [Concomitant]
  4. PREDNISONE [Concomitant]

REACTIONS (1)
  - Lymphoma [Recovered/Resolved]
